FAERS Safety Report 7829840-3 (Version None)
Quarter: 2011Q4

REPORT INFORMATION
  Report Type: 
  Country: None (occurrence: None)
  Receive Date: 20111021
  Receipt Date: 20111014
  Transmission Date: 20120403
  Serious: Yes (Death)
  Sender: FDA-Public Use
  Company Number: DE-CELGENEUS-062-21880-11043183

PATIENT
  Age: 78 Year
  Sex: Female
  Weight: 60 kg

DRUGS (5)
  1. REVLIMID [Suspect]
     Indication: MULTIPLE MYELOMA
     Dosage: 25 MILLIGRAM
     Route: 048
     Dates: start: 20100120
  2. REVLIMID [Suspect]
     Dosage: 15 MILLIGRAM
     Route: 048
     Dates: end: 20101111
  3. CYCLOPHOSPHAMIDE [Concomitant]
     Indication: MULTIPLE MYELOMA
     Route: 041
  4. DEXAMETHASONE [Concomitant]
     Indication: MULTIPLE MYELOMA
     Route: 065
  5. CYCLOPHOSPHAMIDE [Concomitant]
     Route: 041

REACTIONS (2)
  - CEREBRAL HAEMORRHAGE [None]
  - RENAL FAILURE [None]
